FAERS Safety Report 8793362 (Version 2)
Quarter: 2012Q4

REPORT INFORMATION
  Report Type: 
  Country: US (occurrence: US)
  Receive Date: 20120918
  Receipt Date: 20121218
  Transmission Date: 20130627
  Serious: No
  Sender: FDA-Public Use
  Company Number: US-ASTRAZENECA-2011SE46352

PATIENT
  Age: 80 Year
  Sex: Female

DRUGS (3)
  1. NEXIUM [Suspect]
     Route: 048
  2. CELEBREX [Concomitant]
  3. IMMODIUM AD [Concomitant]

REACTIONS (7)
  - Arthritis [Unknown]
  - Condition aggravated [Unknown]
  - Oesophageal food impaction [Unknown]
  - Oesophageal stenosis [Unknown]
  - Dysphagia [Unknown]
  - Vomiting [Unknown]
  - Drug dose omission [Unknown]
